FAERS Safety Report 20621478 (Version 2)
Quarter: 2022Q3

REPORT INFORMATION
  Report Type: Spontaneous
  Country: US (occurrence: US)
  Receive Date: 20220322
  Receipt Date: 20220701
  Transmission Date: 20221027
  Serious: Yes (Other)
  Sender: FDA-Public Use
  Company Number: US-SA-SAC20220318000478

PATIENT
  Age: 56 Year
  Sex: Male

DRUGS (1)
  1. ZANTAC [Suspect]
     Active Substance: RANITIDINE HYDROCHLORIDE
     Indication: Gastrooesophageal reflux disease
     Dosage: UNK, QD
     Route: 065
     Dates: start: 201107, end: 201707

REACTIONS (5)
  - Colorectal cancer stage II [Recovering/Resolving]
  - Oesophageal carcinoma [Recovering/Resolving]
  - Lung carcinoma cell type unspecified stage II [Recovering/Resolving]
  - Gastric cancer stage II [Recovering/Resolving]
  - Colon cancer stage II [Recovering/Resolving]

NARRATIVE: CASE EVENT DATE: 20120801
